FAERS Safety Report 11281413 (Version 2)
Quarter: 2015Q4

REPORT INFORMATION
  Report Type: Spontaneous
  Country: US (occurrence: US)
  Receive Date: 20150717
  Receipt Date: 20151023
  Transmission Date: 20160304
  Serious: Yes (Other)
  Sender: FDA-Public Use
  Company Number: US-PFIZER INC-2015234807

PATIENT
  Age: 78 Year
  Sex: Female
  Weight: 69.84 kg

DRUGS (2)
  1. GABAPENTIN. [Suspect]
     Active Substance: GABAPENTIN
     Dosage: 100 MG, UNK (WEAN UP ON A 100 MG AS DIRECTED )
     Dates: end: 2013
  2. GABAPENTIN. [Suspect]
     Active Substance: GABAPENTIN
     Dosage: 300 MG, 3X/DAY (300 MG ONE CAPSULE 3 TIMES A DAY )

REACTIONS (6)
  - Drug ineffective [Unknown]
  - Pain [Unknown]
  - Abasia [Unknown]
  - Musculoskeletal pain [Unknown]
  - Back pain [Unknown]
  - Pain in extremity [Unknown]
